FAERS Safety Report 4408194-9 (Version None)
Quarter: 2004Q3

REPORT INFORMATION
  Report Type: 
  Country: None (occurrence: None)
  Receive Date: 20040722
  Receipt Date: 20040712
  Transmission Date: 20050211
  Serious: Yes (Other)
  Sender: FDA-Public Use
  Company Number: JP-JNJFOC-20040703648

PATIENT
  Sex: 0

DRUGS (1)
  1. ITRACONAZOLE [Suspect]
     Dosage: ORAL
     Route: 048

REACTIONS (1)
  - RHABDOMYOLYSIS [None]
